FAERS Safety Report 10881323 (Version 1)
Quarter: 2015Q1

REPORT INFORMATION
  Report Type: Spontaneous
  Country: GB (occurrence: GB)
  Receive Date: 20150303
  Receipt Date: 20150303
  Transmission Date: 20150721
  Serious: Yes (Other)
  Sender: FDA-Public Use
  Company Number: GB-TEVA-543893ACC

PATIENT
  Age: 67 Year
  Sex: Male
  Weight: 88.9 kg

DRUGS (9)
  1. CLOPIDOGREL 5-SULFOSALICYLATE [Concomitant]
  2. ATORVASTATIN [Suspect]
     Active Substance: ATORVASTATIN
     Indication: ANGINA PECTORIS
     Route: 048
     Dates: start: 20140716, end: 20150213
  3. GLYCERYL TRINITRATE [Concomitant]
     Active Substance: NITROGLYCERIN
  4. LANSOPRAZOL [Concomitant]
     Active Substance: LANSOPRAZOLE
  5. BISOPROLOL [Suspect]
     Active Substance: BISOPROLOL
     Indication: ANGINA PECTORIS
     Route: 048
     Dates: start: 20140715, end: 20141224
  6. NICORANDIL [Concomitant]
     Active Substance: NICORANDIL
  7. BETAHISTINE [Concomitant]
     Active Substance: BETAHISTINE
  8. ASPIRIN. [Concomitant]
     Active Substance: ASPIRIN
  9. ISOSORBIDE [Concomitant]
     Active Substance: ISOSORBIDE

REACTIONS (4)
  - Bradycardia [Recovered/Resolved]
  - Heart rate decreased [Recovered/Resolved]
  - Somnolence [Recovered/Resolved]
  - Fatigue [Recovered/Resolved]

NARRATIVE: CASE EVENT DATE: 20140715
